FAERS Safety Report 5587398-6 (Version None)
Quarter: 2007Q4

REPORT INFORMATION
  Report Type: 
  Country: None (occurrence: None)
  Receive Date: 20071207
  Receipt Date: 20070901
  Transmission Date: 20080405
  Serious: Yes (Other)
  Sender: FDA-Public Use
  Company Number: 2007058031

PATIENT
  Age: 42 Year
  Sex: Male
  Weight: 95.4 kg

DRUGS (1)
  1. VIAGRA [Suspect]
     Indication: ERECTILE DYSFUNCTION
     Dosage: 100 MG (100 MG,AS NECESSARY)

REACTIONS (2)
  - DRUG INEFFECTIVE [None]
  - HYPERTENSION [None]
